FAERS Safety Report 19889958 (Version 1)
Quarter: 2021Q3

REPORT INFORMATION
  Report Type: Spontaneous
  Country: US (occurrence: US)
  Receive Date: 20210924
  Receipt Date: 20210924
  Transmission Date: 20211014
  Serious: No
  Sender: FDA-Public Use
  Company Number: None

PATIENT

DRUGS (2)
  1. BICILLIN C?R [Suspect]
     Active Substance: PENICILLIN G BENZATHINE\PENICILLIN G PROCAINE
     Route: 030
  2. BICILLIN L?A [Suspect]
     Active Substance: PENICILLIN G BENZATHINE
     Route: 030

REACTIONS (2)
  - Wrong product administered [None]
  - Product barcode issue [None]
